FAERS Safety Report 13289348 (Version 1)
Quarter: 2017Q1

REPORT INFORMATION
  Report Type: Spontaneous
  Country: US (occurrence: US)
  Receive Date: 20170302
  Receipt Date: 20170302
  Transmission Date: 20170428
  Serious: No
  Sender: FDA-Public Use
  Company Number: US-SHIRE-US201704016

PATIENT
  Age: 66 Year
  Sex: Female

DRUGS (6)
  1. LIALDA [Suspect]
     Active Substance: MESALAMINE
     Dosage: 3.6 G (THREE 1.2 G TABLETS) UNKNOWN (A DAY
     Route: 048
     Dates: start: 2017, end: 2017
  2. ALPRAZOLAM. [Concomitant]
     Active Substance: ALPRAZOLAM
     Indication: PRODUCT USED FOR UNKNOWN INDICATION
     Dosage: UNK, UNKNOWN
     Route: 065
  3. LIALDA [Suspect]
     Active Substance: MESALAMINE
     Dosage: 3.6 G (THREE 1.2 G TABLETS) UNKNOWN (A DAY)
     Route: 048
     Dates: start: 201611, end: 201611
  4. LIALDA [Suspect]
     Active Substance: MESALAMINE
     Indication: COLITIS ULCERATIVE
     Dosage: 3.6 G (THREE 1.2 G TABLETS) UNKNOWN (A DAY
     Route: 048
     Dates: start: 201610, end: 201611
  5. LIALDA [Suspect]
     Active Substance: MESALAMINE
     Dosage: 3.6 G (THREE 1.2 G TABLETS) UNKNOWN (/DAY)
     Route: 048
     Dates: start: 201611, end: 201611
  6. LIALDA [Suspect]
     Active Substance: MESALAMINE
     Dosage: 2.4 G (TWO 1.2 G TABLETS) UNKNOWN (/DAY)
     Route: 048
     Dates: start: 201611, end: 201611

REACTIONS (5)
  - Drug dose omission [Not Recovered/Not Resolved]
  - Diarrhoea [Unknown]
  - Abdominal pain [Unknown]
  - Fatigue [Unknown]
  - Abdominal pain upper [Unknown]

NARRATIVE: CASE EVENT DATE: 201610
